FAERS Safety Report 7986189-6 (Version None)
Quarter: 2011Q4

REPORT INFORMATION
  Report Type: 
  Country: None (occurrence: None)
  Receive Date: 20111216
  Receipt Date: 20111213
  Transmission Date: 20120403
  Serious: Yes (Hospitalization)
  Sender: FDA-Public Use
  Company Number: US-GLAXOSMITHKLINE-A0942533A

PATIENT
  Age: 57 Year
  Sex: Male

DRUGS (7)
  1. DILANTIN [Concomitant]
  2. KEPPRA [Concomitant]
  3. LEVETIRACETAM [Suspect]
     Indication: PRODUCT USED FOR UNKNOWN INDICATION
     Route: 065
     Dates: start: 20110901
  4. VYTORIN [Concomitant]
  5. LAMOTRIGINE [Suspect]
     Indication: CONVULSION
     Route: 065
     Dates: start: 20110901
  6. ASPIRIN [Concomitant]
  7. MULTI-VITAMIN [Concomitant]

REACTIONS (22)
  - AURA [None]
  - ANGER [None]
  - AGGRESSION [None]
  - IRRITABILITY [None]
  - SKIN BURNING SENSATION [None]
  - PERSONALITY CHANGE [None]
  - VISUAL IMPAIRMENT [None]
  - COORDINATION ABNORMAL [None]
  - SCREAMING [None]
  - CONFUSIONAL STATE [None]
  - THERAPEUTIC RESPONSE UNEXPECTED WITH DRUG SUBSTITUTION [None]
  - FEELING ABNORMAL [None]
  - DEPRESSED LEVEL OF CONSCIOUSNESS [None]
  - CONVULSION [None]
  - BALANCE DISORDER [None]
  - LOSS OF CONSCIOUSNESS [None]
  - HOSTILITY [None]
  - APHASIA [None]
  - GLOSSODYNIA [None]
  - PARAESTHESIA [None]
  - SLEEP DISORDER [None]
  - DISORIENTATION [None]
